FAERS Safety Report 25795218 (Version 3)
Quarter: 2025Q3

REPORT INFORMATION
  Report Type: Spontaneous
  Country: GB (occurrence: GB)
  Receive Date: 20250912
  Receipt Date: 20250930
  Transmission Date: 20251021
  Serious: Yes (Life-Threatening, Hospitalization, Other)
  Sender: ACCORD
  Company Number: GB-Accord-503987

PATIENT
  Age: 32 Year
  Sex: Female

DRUGS (5)
  1. SERTRALINE [Suspect]
     Active Substance: SERTRALINE HYDROCHLORIDE
     Indication: Depression
     Dosage: DOSE GRADUALLY INCREASED
  2. BUPIVACAINE [Suspect]
     Active Substance: BUPIVACAINE
     Indication: Spinal anaesthesia
     Route: 037
  3. DIAMORPHINE [Concomitant]
     Active Substance: DIAMORPHINE
     Indication: Spinal anaesthesia
     Route: 037
  4. PHENYLEPHRINE [Concomitant]
     Active Substance: PHENYLEPHRINE
  5. CEFUROXIME [Concomitant]
     Active Substance: CEFUROXIME

REACTIONS (5)
  - Maternal exposure during pregnancy [Unknown]
  - Serotonin syndrome [Unknown]
  - Circulatory collapse [Recovering/Resolving]
  - Metabolic acidosis [Unknown]
  - Respiratory acidosis [Unknown]
